FAERS Safety Report 25020108 (Version 3)
Quarter: 2025Q1

REPORT INFORMATION
  Report Type: Spontaneous
  Country: US (occurrence: US)
  Receive Date: 20250227
  Receipt Date: 20250320
  Transmission Date: 20250408
  Serious: No
  Sender: NOVARTIS
  Company Number: US-002147023-NVSC2025US033921

PATIENT

DRUGS (1)
  1. PLUVICTO [Suspect]
     Active Substance: LUTETIUM LU-177 VIPIVOTIDE TETRAXETAN
     Indication: Prostate cancer
     Route: 065

REACTIONS (5)
  - Cystitis [Unknown]
  - Dysuria [Unknown]
  - Pollakiuria [Unknown]
  - Micturition urgency [Unknown]
  - Aspartate aminotransferase increased [Unknown]
